FAERS Safety Report 9463704 (Version 3)
Quarter: 2014Q1

REPORT INFORMATION
  Report Type: Report from Study
  Country: IE (occurrence: IE)
  Receive Date: 20130819
  Receipt Date: 20140108
  Transmission Date: 20141002
  Serious: Yes (Other)
  Sender: FDA-Public Use
  Company Number: PHHY2013IE082626

PATIENT
  Sex: Male

DRUGS (2)
  1. ONBREZ [Suspect]
     Dosage: 150 UG, UNK
     Dates: start: 20130522, end: 20130610
  2. VENTOLIN [Concomitant]
     Indication: ASTHMA
     Dosage: 2 DF, PRN

REACTIONS (2)
  - Asthma [Unknown]
  - Dyspnoea [Recovering/Resolving]
